FAERS Safety Report 7827513-4 (Version None)
Quarter: 2011Q4

REPORT INFORMATION
  Report Type: 
  Country: None (occurrence: None)
  Receive Date: 20111020
  Receipt Date: 20111011
  Transmission Date: 20120403
  Serious: Yes (Hospitalization, Other)
  Sender: FDA-Public Use
  Company Number: PHHY2011NZ90249

PATIENT
  Sex: Female

DRUGS (5)
  1. ARIPIPRAZOLE [Concomitant]
     Indication: SCHIZOPHRENIA
     Dosage: 15 MG,
     Route: 064
  2. LEVOTHYROXINE SODIUM [Concomitant]
     Dosage: 50 UG,
     Route: 064
  3. CLOZARIL [Suspect]
     Indication: SCHIZOPHRENIA
     Dosage: 300 MG, DAILY (FOETAL DRUG EXPOSURE VVIA FATHER)
     Route: 064
     Dates: start: 20100608
  4. METFORMIN HCL [Concomitant]
     Route: 064
  5. FLUOXETINE [Concomitant]
     Dosage: 20 MG, UNK
     Route: 064

REACTIONS (3)
  - MATERNAL EXPOSURE DURING PREGNANCY [None]
  - JAUNDICE [None]
  - GRUNTING [None]
